FAERS Safety Report 9243028 (Version 1)
Quarter: 2013Q2

REPORT INFORMATION
  Report Type: Spontaneous
  Country: GB (occurrence: GB)
  Receive Date: 20130419
  Receipt Date: 20130419
  Transmission Date: 20140414
  Serious: Yes (Hospitalization, Other)
  Sender: FDA-Public Use
  Company Number: GB-ASTRAZENECA-2013SE24815

PATIENT
  Sex: Male

DRUGS (2)
  1. CASODEX [Suspect]
     Route: 048
     Dates: start: 20130201, end: 20130225
  2. ASPIRIN [Concomitant]

REACTIONS (2)
  - Cardiac failure [Unknown]
  - Dyspnoea [Unknown]
